FAERS Safety Report 7217007-1 (Version None)
Quarter: 2011Q1

REPORT INFORMATION
  Report Type: 
  Country: None (occurrence: None)
  Receive Date: 20110105
  Receipt Date: 20110105
  Transmission Date: 20110831
  Serious: No
  Sender: FDA-Public Use
  Company Number: None

PATIENT

DRUGS (2)
  1. LIPITOR [Suspect]
     Indication: RESPIRATION ABNORMAL
  2. SIMUVASIN [Suspect]

REACTIONS (5)
  - CLAUSTROPHOBIA [None]
  - INSOMNIA [None]
  - NOCTURNAL DYSPNOEA [None]
  - LUNG NEOPLASM [None]
  - QUALITY OF LIFE DECREASED [None]
